FAERS Safety Report 5327986-5 (Version None)
Quarter: 2007Q2

REPORT INFORMATION
  Report Type: 
  Country: None (occurrence: None)
  Receive Date: 20070517
  Receipt Date: 20070508
  Transmission Date: 20071010
  Serious: Yes (Other)
  Sender: FDA-Public Use
  Company Number: US-PFIZER INC-2007037971

PATIENT
  Sex: Female
  Weight: 80.909 kg

DRUGS (2)
  1. CHANTIX [Suspect]
     Indication: SMOKING CESSATION THERAPY
  2. ANAESTHETICS [Suspect]
     Indication: SURGERY

REACTIONS (4)
  - MUTISM [None]
  - NAUSEA [None]
  - PAIN [None]
  - SPINAL OPERATION [None]
